FAERS Safety Report 11639756 (Version 1)
Quarter: 2015Q4

REPORT INFORMATION
  Report Type: Spontaneous
  Country: US (occurrence: None)
  Receive Date: 20151016
  Receipt Date: 20151016
  Transmission Date: 20160304
  Serious: Yes (Other)
  Sender: FDA-Public Use
  Company Number: None

PATIENT
  Age: 46 Year
  Sex: Male

DRUGS (1)
  1. SOVALDI [Suspect]
     Active Substance: SOFOSBUVIR
     Dosage: 400-90MG
     Route: 048
     Dates: start: 20150611

REACTIONS (2)
  - Vascular rupture [None]
  - Therapy cessation [None]

NARRATIVE: CASE EVENT DATE: 20151014
